FAERS Safety Report 6368538-8 (Version None)
Quarter: 2009Q3

REPORT INFORMATION
  Report Type: 
  Country: None (occurrence: None)
  Receive Date: 20090916
  Receipt Date: 20090907
  Transmission Date: 20100115
  Serious: Yes (Disabling, Other)
  Sender: FDA-Public Use
  Company Number: 375045

PATIENT
  Age: 12 Year
  Sex: Male

DRUGS (3)
  1. METHOTREXATE [Suspect]
     Indication: BURKITT'S LYMPHOMA
     Dosage: INTRATHECAL
     Route: 037
  2. HYDROCORTISONE [Concomitant]
  3. CYTARABINE [Concomitant]

REACTIONS (15)
  - APHASIA [None]
  - BACTERAEMIA [None]
  - BLINDNESS [None]
  - COMPLEX PARTIAL SEIZURES [None]
  - CONVULSION [None]
  - DRUG TOXICITY [None]
  - GAZE PALSY [None]
  - HYPERTENSION [None]
  - HYPOAESTHESIA [None]
  - HYPOCALCAEMIA [None]
  - HYPOMAGNESAEMIA [None]
  - HYPOPHOSPHATAEMIA [None]
  - REVERSIBLE POSTERIOR LEUKOENCEPHALOPATHY SYNDROME [None]
  - TUMOUR LYSIS SYNDROME [None]
  - VISUAL ACUITY REDUCED [None]
